FAERS Safety Report 12528528 (Version 2)
Quarter: 2016Q3

REPORT INFORMATION
  Report Type: Spontaneous
  Country: JP (occurrence: JP)
  Receive Date: 20160705
  Receipt Date: 20160919
  Transmission Date: 20161109
  Serious: Yes (Death, Hospitalization, Other)
  Sender: FDA-Public Use
  Company Number: JP-BAYER-2016-127064

PATIENT
  Age: 89 Year
  Sex: Male

DRUGS (8)
  1. WARFARIN [Interacting]
     Active Substance: WARFARIN
     Indication: CARDIAC ANEURYSM
     Dosage: 2 MG, QD
  2. LIVALO [Concomitant]
     Active Substance: PITAVASTATIN CALCIUM
     Dosage: 1 MG, QD
  3. LEVODOPA [Concomitant]
     Active Substance: LEVODOPA
     Indication: PARKINSON^S DISEASE
     Dosage: 700 MG, QD
  4. NITROPEN [Concomitant]
     Active Substance: NITROGLYCERIN
  5. SELOKEN [Concomitant]
     Active Substance: METOPROLOL
     Dosage: 40 MG, QD
  6. UNISIA [Concomitant]
     Active Substance: AMLODIPINE BESYLATE\CANDESARTAN CILEXETIL
     Dosage: 1 DF, QD
  7. BAYASPIRIN [Suspect]
     Active Substance: ASPIRIN
     Indication: MYOCARDIAL INFARCTION
     Dosage: 100 MG, QD
     Route: 048
  8. TAKEPRON [Concomitant]
     Active Substance: LANSOPRAZOLE
     Dosage: 15 MG, QD

REACTIONS (10)
  - Aspiration [Fatal]
  - Subdural haematoma [Not Recovered/Not Resolved]
  - Brain contusion [None]
  - Fall [None]
  - Traumatic intracranial haemorrhage [None]
  - Cardio-respiratory arrest [Fatal]
  - Drug administration error [None]
  - Asphyxia [Fatal]
  - Labelled drug-drug interaction medication error [None]
  - Head injury [Recovered/Resolved with Sequelae]

NARRATIVE: CASE EVENT DATE: 20141203
